FAERS Safety Report 6746817-X (Version None)
Quarter: 2010Q2

REPORT INFORMATION
  Report Type: 
  Country: None (occurrence: None)
  Receive Date: 20100528
  Receipt Date: 20100107
  Transmission Date: 20101027
  Serious: No
  Sender: FDA-Public Use
  Company Number: A0838317A

PATIENT
  Age: 61 Year
  Sex: Female

DRUGS (2)
  1. VENTOLIN [Suspect]
     Indication: ASTHMA
     Dosage: 2PUFF AS REQUIRED
     Route: 055
     Dates: start: 20090701
  2. IBUPROFEN [Concomitant]

REACTIONS (4)
  - BLOOD PRESSURE SYSTOLIC INCREASED [None]
  - CHEST DISCOMFORT [None]
  - DRUG INEFFECTIVE [None]
  - TREMOR [None]
